FAERS Safety Report 9256814 (Version 1)
Quarter: 2013Q2

REPORT INFORMATION
  Report Type: Spontaneous
  Country: US (occurrence: None)
  Receive Date: 20130423
  Receipt Date: 20130423
  Transmission Date: 20140414
  Serious: Yes (Hospitalization)
  Sender: FDA-Public Use
  Company Number: None

PATIENT
  Age: 39 Year
  Sex: Male
  Weight: 119.6 kg

DRUGS (1)
  1. NUCYNTA ER [Suspect]
     Indication: BACK PAIN
     Dosage: 100MG BID PO
     Route: 048
     Dates: start: 20121221, end: 20130129

REACTIONS (9)
  - Serotonin syndrome [None]
  - Tremor [None]
  - Anxiety [None]
  - Sedation [None]
  - Chills [None]
  - Diarrhoea [None]
  - Headache [None]
  - Drug interaction [None]
  - Therapeutic response decreased [None]
